FAERS Safety Report 15813510 (Version 2)
Quarter: 2019Q1

REPORT INFORMATION
  Report Type: Spontaneous
  Country: JP (occurrence: JP)
  Receive Date: 20190111
  Receipt Date: 20190116
  Transmission Date: 20190417
  Serious: Yes (Death)
  Sender: FDA-Public Use
  Company Number: JP-BAYER-2019-007122

PATIENT
  Age: 24 Year
  Sex: Female

DRUGS (2)
  1. WARFARIN POTASSIUM [Interacting]
     Active Substance: WARFARIN POTASSIUM
  2. BAYASPIRIN 100 MG [Suspect]
     Active Substance: ASPIRIN

REACTIONS (2)
  - Subarachnoid haemorrhage [Fatal]
  - Labelled drug-drug interaction medication error [Fatal]
